FAERS Safety Report 14818626 (Version 3)
Quarter: 2018Q4

REPORT INFORMATION
  Report Type: Report from Study
  Country: None (occurrence: US)
  Receive Date: 20180427
  Receipt Date: 20181111
  Transmission Date: 20190204
  Serious: Yes (Other)
  Sender: FDA-Public Use
  Company Number: US-ABBVIE-17K-163-1867795-00

PATIENT
  Sex: Female

DRUGS (3)
  1. HUMIRA [Suspect]
     Active Substance: ADALIMUMAB
     Indication: ANKYLOSING SPONDYLITIS
     Route: 058
  2. CORTISONE [Suspect]
     Active Substance: CORTISONE\HYDROCORTISONE
     Indication: PAIN
     Route: 058
  3. PROPOFOL. [Suspect]
     Active Substance: PROPOFOL
     Indication: PRODUCT USED FOR UNKNOWN INDICATION
     Route: 065

REACTIONS (26)
  - Seizure [Unknown]
  - Anal incontinence [Unknown]
  - Injection site haemorrhage [Unknown]
  - Paraesthesia [Unknown]
  - Joint injection [Unknown]
  - Gastric ulcer haemorrhage [Unknown]
  - Pain [Unknown]
  - Nerve injury [Unknown]
  - Stomach mass [Unknown]
  - Faeces discoloured [Unknown]
  - Eye inflammation [Unknown]
  - Vomiting [Unknown]
  - Stress [Unknown]
  - Tongue disorder [Unknown]
  - Musculoskeletal stiffness [Unknown]
  - Injection site bruising [Unknown]
  - Lethargy [Unknown]
  - Gastric mucosal lesion [Unknown]
  - Contusion [Unknown]
  - Therapeutic response shortened [Unknown]
  - Post procedural complication [Unknown]
  - Ulcer haemorrhage [Unknown]
  - Dry eye [Unknown]
  - Hypoaesthesia [Unknown]
  - Vision blurred [Recovered/Resolved]
  - Vision blurred [Unknown]
